FAERS Safety Report 12157332 (Version 4)
Quarter: 2016Q2

REPORT INFORMATION
  Report Type: Report from Study
  Country: US (occurrence: US)
  Receive Date: 20160308
  Receipt Date: 20160512
  Transmission Date: 20160815
  Serious: Yes (Life-Threatening, Hospitalization)
  Sender: FDA-Public Use
  Company Number: US-ROCHE-1719908

PATIENT
  Age: 64 Year
  Sex: Female
  Weight: 58.69 kg

DRUGS (12)
  1. ONDANSETRON HCL [Concomitant]
     Active Substance: ONDANSETRON HYDROCHLORIDE
     Indication: NAUSEA
     Route: 048
     Dates: start: 20151207
  2. GDC-0994 (ERK INHIBITOR) [Suspect]
     Active Substance: INVESTIGATIONAL PRODUCT
     Indication: COLON CANCER METASTATIC
     Dosage: MOST RECENT DOSE OF GDC-0994, 200 MG WAS ADMINISTERED ON 22/FEB/2016?THREE WEEKS ON DRUG, LAST 1 WEE
     Route: 048
     Dates: start: 20160208
  3. PROCHLORPERAZINE MALEATE. [Concomitant]
     Active Substance: PROCHLORPERAZINE MALEATE
     Indication: NAUSEA
  4. TRIAMCINOLONE ACETONIDE. [Concomitant]
     Active Substance: TRIAMCINOLONE ACETONIDE
     Indication: DERMATITIS ACNEIFORM
     Route: 061
     Dates: start: 20160215
  5. COBIMETINIB [Suspect]
     Active Substance: COBIMETINIB
     Indication: COLON CANCER METASTATIC
     Dosage: MOST RECENT DOSE OF COBIMETINIB 80 MG WAS ADMINISTERED ON 22/FEB/2016
     Route: 048
     Dates: start: 20160208
  6. MORPHINE SULFATE. [Concomitant]
     Active Substance: MORPHINE SULFATE
     Indication: CHEST PAIN
     Route: 048
     Dates: start: 201512
  7. SENNA LAXATIVE [Concomitant]
     Active Substance: SENNOSIDES
     Indication: CONSTIPATION
     Route: 048
     Dates: start: 2015
  8. NORMAL SALINE [Concomitant]
     Active Substance: SODIUM CHLORIDE
     Indication: DEHYDRATION
     Route: 042
     Dates: start: 20160222, end: 20160222
  9. ADVAIR HFA [Concomitant]
     Active Substance: FLUTICASONE PROPIONATE\SALMETEROL XINAFOATE
     Indication: DYSPNOEA
     Dosage: DOSE 1 PUFF
     Route: 055
     Dates: start: 20110309
  10. METFORMIN [Concomitant]
     Active Substance: METFORMIN HYDROCHLORIDE
     Indication: TYPE 2 DIABETES MELLITUS
     Route: 048
     Dates: start: 20141014
  11. OXYCODONE/PARACETAMOL [Concomitant]
     Active Substance: ACETAMINOPHEN\OXYCODONE HYDROCHLORIDE
     Indication: CHEST PAIN
     Route: 048
     Dates: start: 2014
  12. METHADONE HCL [Concomitant]
     Active Substance: METHADONE HYDROCHLORIDE
     Indication: CHEST PAIN
     Route: 048
     Dates: start: 20110411

REACTIONS (3)
  - Left ventricular dysfunction [Not Recovered/Not Resolved]
  - Dyspnoea [Recovered/Resolved]
  - Myocardial infarction [Not Recovered/Not Resolved]

NARRATIVE: CASE EVENT DATE: 20160228
